FAERS Safety Report 5608182-0 (Version None)
Quarter: 2008Q1

REPORT INFORMATION
  Report Type: 
  Country: None (occurrence: None)
  Receive Date: 20080130
  Receipt Date: 20080118
  Transmission Date: 20080703
  Serious: Yes (Hospitalization)
  Sender: FDA-Public Use
  Company Number: TR-ELI_LILLY_AND_COMPANY-TR200801005694

PATIENT
  Sex: Female
  Weight: 85 kg

DRUGS (2)
  1. HUMALOG [Suspect]
     Indication: DIABETES MELLITUS
     Route: 058
     Dates: start: 20050101
  2. LANTUS [Concomitant]
     Indication: DIABETES MELLITUS
     Dosage: 16 U, DAILY (1/D)
     Route: 058

REACTIONS (7)
  - ANTICOAGULANT THERAPY [None]
  - ARRHYTHMIA [None]
  - BLOOD GLUCOSE INCREASED [None]
  - CARDIAC DISORDER [None]
  - GLYCOSYLATED HAEMOGLOBIN INCREASED [None]
  - HYPERTENSION [None]
  - VASCULAR GRAFT [None]
